FAERS Safety Report 12785565 (Version 3)
Quarter: 2017Q1

REPORT INFORMATION
  Report Type: Spontaneous
  Country: NL (occurrence: NL)
  Receive Date: 20160927
  Receipt Date: 20170126
  Transmission Date: 20170428
  Serious: Yes (Hospitalization)
  Sender: FDA-Public Use
  Company Number: NL-PFIZER INC-2016443468

PATIENT
  Age: 50 Year
  Sex: Female

DRUGS (3)
  1. FOLIC ACID. [Concomitant]
     Active Substance: FOLIC ACID
     Dosage: 5 MG, WEEKLY
  2. METHOTREXATE SODIUM. [Suspect]
     Active Substance: METHOTREXATE SODIUM
     Indication: NEUROSARCOIDOSIS
     Dosage: 15 MG, WEEKLY (ONCE)
  3. ADALIMUMAB [Concomitant]
     Active Substance: ADALIMUMAB
     Indication: NEUROSARCOIDOSIS
     Dosage: UNK

REACTIONS (3)
  - Chest pain [Unknown]
  - Mouth ulceration [Unknown]
  - Toxicity to various agents [Unknown]
